FAERS Safety Report 17650074 (Version 1)
Quarter: 2020Q2

REPORT INFORMATION
  Report Type: Spontaneous
  Country: US (occurrence: US)
  Receive Date: 20200408
  Receipt Date: 20200408
  Transmission Date: 20200713
  Serious: Yes (Other)
  Sender: FDA-Public Use
  Company Number: None

PATIENT
  Age: 86 Year
  Sex: Female

DRUGS (1)
  1. BEOVU [Suspect]
     Active Substance: BROLUCIZUMAB-DBLL
     Indication: NEOVASCULAR AGE-RELATED MACULAR DEGENERATION
     Dosage: ?          OTHER FREQUENCY:EVERY 4 WEEKS;?
     Route: 031
     Dates: start: 20191106, end: 20200318

REACTIONS (2)
  - Eye inflammation [None]
  - Retinal vascular occlusion [None]

NARRATIVE: CASE EVENT DATE: 20200325
